FAERS Safety Report 21463691 (Version 2)
Quarter: 2022Q4

REPORT INFORMATION
  Report Type: Report from Study
  Country: US (occurrence: US)
  Receive Date: 20221017
  Receipt Date: 20221101
  Transmission Date: 20230113
  Serious: No
  Sender: FDA-Public Use
  Company Number: US-ABBVIE-4147020

PATIENT
  Sex: Male

DRUGS (1)
  1. IMBRUVICA [Suspect]
     Active Substance: IBRUTINIB
     Indication: Chronic lymphocytic leukaemia
     Dosage: FORM STRENGTH 280 MILLIGRAM
     Route: 048
     Dates: start: 201804

REACTIONS (3)
  - Hypoaesthesia [Unknown]
  - Sensory disturbance [Unknown]
  - Diarrhoea [Unknown]
